FAERS Safety Report 4996698-X (Version None)
Quarter: 2006Q2

REPORT INFORMATION
  Report Type: 
  Country: None (occurrence: None)
  Receive Date: 20060509
  Receipt Date: 20050908
  Transmission Date: 20061013
  Serious: Yes (Hospitalization, Disabling)
  Sender: FDA-Public Use
  Company Number: US-MERCK-0509USA01052

PATIENT
  Age: 54 Year
  Sex: Male
  Weight: 89 kg

DRUGS (2)
  1. VIOXX [Suspect]
     Indication: ARTHRALGIA
     Route: 048
     Dates: start: 20020101, end: 20030301
  2. VIOXX [Suspect]
     Indication: MUSCULOSKELETAL DISORDER
     Route: 048
     Dates: start: 20020101, end: 20030301

REACTIONS (10)
  - ABDOMINAL PAIN [None]
  - ACUTE MYOCARDIAL INFARCTION [None]
  - CHOLECYSTITIS ACUTE [None]
  - CHOLELITHIASIS [None]
  - DEPRESSION [None]
  - EMOTIONAL DISTRESS [None]
  - ESSENTIAL HYPERTENSION [None]
  - HYPERLIPIDAEMIA [None]
  - MOVEMENT DISORDER [None]
  - MYOCARDIAL ISCHAEMIA [None]
